FAERS Safety Report 8314017-8 (Version None)
Quarter: 2012Q2

REPORT INFORMATION
  Report Type: 
  Country: None (occurrence: None)
  Receive Date: 20120426
  Receipt Date: 20110808
  Transmission Date: 20120825
  Serious: Yes (Other)
  Sender: FDA-Public Use
  Company Number: US-TEVA-US023414

PATIENT
  Sex: Male
  Weight: 83 kg

DRUGS (16)
  1. DYNACIRC CR [Concomitant]
     Indication: HYPERTENSION
     Dosage: 5 MILLIGRAM;
     Route: 048
     Dates: start: 20040101
  2. CEREFOLIN NAC [Concomitant]
     Indication: DEMENTIA
     Route: 048
     Dates: start: 20040101
  3. NAMENDA [Concomitant]
     Indication: DEMENTIA
     Dosage: 20 MILLIGRAM;
     Route: 048
     Dates: start: 20040101
  4. CALCIUM [Concomitant]
     Indication: BONE LOSS
     Dosage: 600 MILLIGRAM;
     Route: 048
     Dates: start: 20080101
  5. VITAMIN TAB [Concomitant]
     Indication: MEDICAL DIET
     Dosage: VITAMIN E 400IU, VITAMIN C 500MG, VITAMIN B6 100MG AND VITAMIN B1 100MG QD
     Route: 048
  6. BISOPROLOL FUMARATE [Concomitant]
     Indication: CARDIAC DISORDER
     Dosage: 5 MILLIGRAM;
     Route: 048
     Dates: start: 20040101
  7. RAZADYNE ER [Concomitant]
     Indication: DEMENTIA
     Dosage: 24 MILLIGRAM;
     Route: 048
     Dates: start: 20040101
  8. ZETIA [Concomitant]
     Indication: BLOOD CHOLESTEROL INCREASED
     Dosage: 10 MILLIGRAM;
     Route: 048
     Dates: start: 20070101
  9. AVODART [Concomitant]
     Indication: PROSTATOMEGALY
     Dosage: .5 MILLIGRAM;
     Route: 048
     Dates: start: 20080101
  10. FEXOFENADINE HCL [Concomitant]
     Indication: MULTIPLE ALLERGIES
     Dosage: 180 MILLIGRAM;
     Route: 048
     Dates: start: 20020101
  11. LIPITOR [Concomitant]
     Indication: BLOOD CHOLESTEROL INCREASED
     Dosage: 10 MILLIGRAM;
     Route: 048
     Dates: start: 20070101
  12. ASPIRIN [Concomitant]
     Indication: CARDIAC DISORDER
     Dosage: 81 MILLIGRAM;
     Route: 048
     Dates: start: 19880101
  13. BENICAR HCT [Concomitant]
     Indication: HYPERTENSION
     Dosage: 40/12.5MG QD
     Route: 048
     Dates: start: 20040101
  14. PROVIGIL [Suspect]
     Indication: SLEEP APNOEA SYNDROME
     Dosage: 50 MILLIGRAM;
     Route: 048
     Dates: start: 20080404
  15. FUROSEMIDE [Concomitant]
     Indication: CARDIAC FAILURE CONGESTIVE
     Dosage: 40 MILLIGRAM;
     Route: 048
  16. FOSAMAX PLUS D [Concomitant]
     Indication: BONE LOSS
     Dosage: 10 MILLIGRAM;
     Route: 048
     Dates: start: 20080101

REACTIONS (2)
  - MANIA [None]
  - ANGER [None]
